FAERS Safety Report 7596357-3 (Version None)
Quarter: 2011Q3

REPORT INFORMATION
  Report Type: 
  Country: None (occurrence: None)
  Receive Date: 20110707
  Receipt Date: 20110629
  Transmission Date: 20111222
  Serious: Yes (Other)
  Sender: FDA-Public Use
  Company Number: DE-GILEAD-2011-0041253

PATIENT

DRUGS (2)
  1. LAMIVUDINE [Concomitant]
     Indication: HEPATITIS B
  2. ADEFOVIR DIPIVOXIL KIT [Suspect]
     Indication: HEPATITIS B

REACTIONS (2)
  - GENOTYPE DRUG RESISTANCE TEST POSITIVE [None]
  - TREATMENT FAILURE [None]
